FAERS Safety Report 8530740-4 (Version None)
Quarter: 2012Q3

REPORT INFORMATION
  Report Type: 
  Country: None (occurrence: None)
  Receive Date: 20120723
  Receipt Date: 20120719
  Transmission Date: 20120928
  Serious: Yes (Death)
  Sender: FDA-Public Use
  Company Number: AU-ROCHE-1046979

PATIENT
  Sex: Female

DRUGS (9)
  1. SOLPRIN [Concomitant]
  2. LUCENTIS [Suspect]
     Indication: AGE-RELATED MACULAR DEGENERATION
     Route: 050
     Dates: start: 20081112
  3. LANOXIN [Concomitant]
  4. INDERAL [Concomitant]
  5. ENALAPRIL MALEATE [Concomitant]
  6. ZOCOR [Concomitant]
  7. CARDIZEM [Concomitant]
  8. LUCENTIS [Suspect]
     Dates: start: 20100412, end: 20100412
  9. METFORMIN HCL [Concomitant]

REACTIONS (2)
  - MYOCARDIAL INFARCTION [None]
  - CEREBROVASCULAR ACCIDENT [None]
